FAERS Safety Report 8652479 (Version 2)
Quarter: 2012Q4

REPORT INFORMATION
  Report Type: Report from Study
  Country: FR (occurrence: FR)
  Receive Date: 20120706
  Receipt Date: 20121228
  Transmission Date: 20130627
  Serious: Yes (Hospitalization)
  Sender: FDA-Public Use
  Company Number: FR-ROCHE-1083974

PATIENT
  Sex: Male
  Weight: 17.5 kg

DRUGS (1)
  1. SOMATROPIN [Suspect]
     Indication: GROWTH HORMONE DEFICIENCY
     Dosage: 6 DAYS IN A WEEK, 10 mg/ 2 ml strength
     Route: 058
     Dates: start: 20111108

REACTIONS (1)
  - Adenoidal hypertrophy [Recovered/Resolved]
